FAERS Safety Report 20798652 (Version 2)
Quarter: 2022Q2

REPORT INFORMATION
  Report Type: Report from Study
  Country: US (occurrence: US)
  Receive Date: 20220507
  Receipt Date: 20220520
  Transmission Date: 20220720
  Serious: Yes (Hospitalization, Other)
  Sender: FDA-Public Use
  Company Number: US-BIOGEN-2022BI01119172

PATIENT
  Sex: Female

DRUGS (1)
  1. VUMERITY [Suspect]
     Active Substance: DIROXIMEL FUMARATE
     Indication: Multiple sclerosis
     Route: 048
     Dates: start: 20211229

REACTIONS (5)
  - Sensory disturbance [Unknown]
  - Full blood count decreased [Unknown]
  - Feeding disorder [Unknown]
  - Asthenia [Unknown]
  - Gait disturbance [Unknown]
